FAERS Safety Report 5074306-X (Version None)
Quarter: 2006Q3

REPORT INFORMATION
  Report Type: 
  Country: None (occurrence: None)
  Receive Date: 20060808
  Receipt Date: 20050711
  Transmission Date: 20061208
  Serious: Yes (Hospitalization)
  Sender: FDA-Public Use
  Company Number: US-AMGEN-KDL142301

PATIENT
  Age: 62 Year
  Sex: Female

DRUGS (5)
  1. PROCRIT [Suspect]
     Indication: ANAEMIA OF MALIGNANT DISEASE
     Route: 058
  2. DURAGESIC-100 [Concomitant]
  3. OXYCODONE HCL [Concomitant]
  4. XELODA [Concomitant]
  5. RADIATION THERAPY [Concomitant]

REACTIONS (1)
  - GRAND MAL CONVULSION [None]
